FAERS Safety Report 6083172-5 (Version None)
Quarter: 2009Q1

REPORT INFORMATION
  Report Type: 
  Country: None (occurrence: None)
  Receive Date: 20090219
  Receipt Date: 20090212
  Transmission Date: 20090719
  Serious: Yes (Hospitalization)
  Sender: FDA-Public Use
  Company Number: PHHY2009MX05225

PATIENT
  Sex: Male

DRUGS (4)
  1. STALEVO 100 [Suspect]
     Indication: PARKINSON'S DISEASE
     Dosage: 2 TABS /DAY
     Route: 048
     Dates: start: 20070705
  2. LIPITOR [Concomitant]
     Indication: BLOOD CHOLESTEROL
     Dosage: 1 TAB/DAY
     Dates: start: 20080212
  3. ASPIRIN [Concomitant]
     Indication: CARDIAC DISORDER
     Dosage: 1 TAB/DAY
  4. PLAVIX [Concomitant]
     Indication: PARKINSON'S DISEASE
     Dosage: 1 TAB/DAY

REACTIONS (4)
  - ARTERIAL REPAIR [None]
  - FALL [None]
  - INJURY [None]
  - TREMOR [None]
